FAERS Safety Report 6083547-4 (Version None)
Quarter: 2009Q1

REPORT INFORMATION
  Report Type: 
  Country: None (occurrence: None)
  Receive Date: 20090219
  Receipt Date: 20090210
  Transmission Date: 20090719
  Serious: Yes (Death)
  Sender: FDA-Public Use
  Company Number: US-BAXTER-2009BH002399

PATIENT
  Age: 92 Year
  Sex: Female

DRUGS (3)
  1. MORPHINE SULFATE [Suspect]
     Indication: PAIN
     Route: 042
     Dates: start: 20090130, end: 20090130
  2. DEXTROSE 2.5% AND SODIUM CHLORIDE 0.45% IN PLASTIC CONTAINER [Concomitant]
     Indication: DRUG USE FOR UNKNOWN INDICATION
     Route: 042
     Dates: start: 20090130, end: 20090130
  3. ANTIBIOTIC (UNSPECIFIED) [Concomitant]
     Indication: SEPSIS
     Route: 042
     Dates: start: 20090101

REACTIONS (3)
  - CARDIAC FAILURE [None]
  - MEDICATION ERROR [None]
  - RESPIRATORY RATE DECREASED [None]
